FAERS Safety Report 5067561-3 (Version None)
Quarter: 2006Q3

REPORT INFORMATION
  Report Type: 
  Country: None (occurrence: None)
  Receive Date: 20060731
  Receipt Date: 20060711
  Transmission Date: 20061208
  Serious: Yes (Other)
  Sender: FDA-Public Use
  Company Number: US200607002171

PATIENT
  Age: 68 Year
  Sex: Female

DRUGS (4)
  1. EVISTA [Suspect]
     Dosage: 60 MG,
     Dates: start: 19980428
  2. LIPITOR [Concomitant]
  3. CLARITIN /USA/ (LORATADINE) [Concomitant]
  4. FLONASE [Concomitant]

REACTIONS (4)
  - ABDOMINAL ADHESIONS [None]
  - COLON CANCER [None]
  - ENDOMETRIAL CANCER [None]
  - METASTASES TO LYMPH NODES [None]
